FAERS Safety Report 9325213 (Version 1)
Quarter: 2013Q2

REPORT INFORMATION
  Report Type: Report from Study
  Country: AR (occurrence: AR)
  Receive Date: 20130604
  Receipt Date: 20130604
  Transmission Date: 20140414
  Serious: Yes (Other)
  Sender: FDA-Public Use
  Company Number: AR-ROCHE-1231533

PATIENT
  Sex: Female

DRUGS (1)
  1. RANIBIZUMAB [Suspect]
     Indication: EYE DISCHARGE
     Route: 050
     Dates: start: 2011

REACTIONS (2)
  - Blindness unilateral [Unknown]
  - Blindness transient [Recovering/Resolving]
